FAERS Safety Report 6943935-8 (Version None)
Quarter: 2010Q3

REPORT INFORMATION
  Report Type: 
  Country: None (occurrence: None)
  Receive Date: 20100826
  Receipt Date: 20100823
  Transmission Date: 20110219
  Serious: Yes (Hospitalization)
  Sender: FDA-Public Use
  Company Number: D0068520A

PATIENT
  Sex: Male

DRUGS (3)
  1. REQUIP [Suspect]
     Indication: PARKINSON'S DISEASE
     Dosage: 8MG PER DAY
     Route: 048
     Dates: start: 20080901, end: 20100501
  2. MADOPAR [Concomitant]
     Dosage: 62.5MG FOUR TIMES PER DAY
     Route: 065
     Dates: start: 20081001
  3. OMEPRAZOLE [Concomitant]
     Indication: ILL-DEFINED DISORDER
     Dosage: 20MG PER DAY
     Route: 065

REACTIONS (3)
  - HYPERSENSITIVITY [None]
  - OEDEMA PERIPHERAL [None]
  - PENILE OEDEMA [None]
